FAERS Safety Report 8464958-6 (Version None)
Quarter: 2012Q2

REPORT INFORMATION
  Report Type: 
  Country: None (occurrence: None)
  Receive Date: 20120619
  Receipt Date: 20120612
  Transmission Date: 20120825
  Serious: Yes (Other)
  Sender: FDA-Public Use
  Company Number: GB-GDP-12414047

PATIENT
  Age: 28 Year
  Sex: Male
  Weight: 63.5 kg

DRUGS (4)
  1. BECLOMETHASONE DIPROPIONATE [Concomitant]
  2. ERYTHROMYCIN [Suspect]
     Indication: ACNE
     Dates: start: 20120426
  3. DOXYCYCLINE [Suspect]
     Indication: ACNE
     Dosage: (ORAL), (ORAL)
     Route: 048
     Dates: start: 20120426
  4. DOXYCYCLINE [Suspect]
     Indication: ACNE
     Dosage: (ORAL), (ORAL)
     Route: 048
     Dates: start: 20120529, end: 20120529

REACTIONS (2)
  - ERECTILE DYSFUNCTION [None]
  - LIBIDO DECREASED [None]
